FAERS Safety Report 11789141 (Version 1)
Quarter: 2015Q4

REPORT INFORMATION
  Report Type: Spontaneous
  Country: US (occurrence: US)
  Receive Date: 20151201
  Receipt Date: 20151201
  Transmission Date: 20160305
  Serious: Yes (Hospitalization)
  Sender: FDA-Public Use
  Company Number: US-AUROBINDO-AUR-APL-2015-10760

PATIENT
  Sex: Male
  Weight: 77.56 kg

DRUGS (2)
  1. METOPROLOL [Suspect]
     Active Substance: METOPROLOL
     Indication: BLOOD PRESSURE MEASUREMENT
     Dosage: 25 MG, ONE MORNING AND ONE AT NIGHT
     Route: 065
  2. BUMEX [Suspect]
     Active Substance: BUMETANIDE
     Indication: PRODUCT USED FOR UNKNOWN INDICATION
     Dosage: 2 MG ONE MORNING AND ONE AT NIGHT
     Route: 065

REACTIONS (3)
  - Dehydration [Unknown]
  - Weight decreased [Unknown]
  - Loss of consciousness [Unknown]
